FAERS Safety Report 6415602-0 (Version None)
Quarter: 2009Q4

REPORT INFORMATION
  Report Type: 
  Country: None (occurrence: None)
  Receive Date: 20091027
  Receipt Date: 20091021
  Transmission Date: 20100525
  Serious: Yes (Death, Life-Threatening, Hospitalization)
  Sender: FDA-Public Use
  Company Number: ES-CELGENEUS-144-C5013-09031009

PATIENT
  Sex: Male
  Weight: 76 kg

DRUGS (4)
  1. CC-5013 [Suspect]
     Indication: MULTIPLE MYELOMA
     Route: 048
     Dates: start: 20090310, end: 20090312
  2. CC-5013\PLACEBO [Suspect]
     Indication: MULTIPLE MYELOMA
     Route: 048
     Dates: end: 20090312
  3. MELPHALAN [Suspect]
     Indication: MULTIPLE MYELOMA
     Route: 065
  4. PREDNISONE [Suspect]
     Indication: MULTIPLE MYELOMA
     Route: 065

REACTIONS (4)
  - ATRIAL FIBRILLATION [None]
  - FATIGUE [None]
  - MULTI-ORGAN FAILURE [None]
  - PYREXIA [None]
